FAERS Safety Report 8024136-1 (Version None)
Quarter: 2012Q1

REPORT INFORMATION
  Report Type: 
  Country: None (occurrence: None)
  Receive Date: 20120103
  Receipt Date: 20111227
  Transmission Date: 20120608
  Serious: Yes (Other)
  Sender: FDA-Public Use
  Company Number: AUR-APL-2011-05555

PATIENT
  Age: 74 Year
  Sex: Male
  Weight: 86.1834 kg

DRUGS (6)
  1. DIGOXIN [Concomitant]
  2. WARFARIN SODIUM [Concomitant]
  3. VITAMIN B12 [Concomitant]
  4. CIPROFLOXACIN [Suspect]
     Indication: SINUSITIS
     Dosage: 1000 MG (500 MG, 2 IN 1 D), ORAL
     Route: 048
     Dates: start: 20110922, end: 20110927
  5. MULTIVITAMIN (VIGRAN) [Concomitant]
  6. FOLIC ACID [Concomitant]

REACTIONS (1)
  - OEDEMA PERIPHERAL [None]
